FAERS Safety Report 17270802 (Version 1)
Quarter: 2020Q1

REPORT INFORMATION
  Report Type: Spontaneous
  Country: US (occurrence: US)
  Receive Date: 20200115
  Receipt Date: 20200115
  Transmission Date: 20200409
  Serious: Yes (Hospitalization, Other)
  Sender: FDA-Public Use
  Company Number: US-NOVAST LABORATORIES LTD.-2020NOV000002

PATIENT
  Age: 15 Year
  Sex: Female

DRUGS (1)
  1. CARISOPRODOL. [Suspect]
     Active Substance: CARISOPRODOL
     Indication: PRODUCT USED FOR UNKNOWN INDICATION
     Dosage: FORTY 350 MILLIGRAM  OF EACH TABLET (14 GM)
     Route: 048

REACTIONS (4)
  - Status epilepticus [Recovering/Resolving]
  - Overdose [Unknown]
  - Respiratory depression [Recovering/Resolving]
  - Coma [Recovering/Resolving]
